FAERS Safety Report 16228074 (Version 2)
Quarter: 2021Q4

REPORT INFORMATION
  Report Type: Spontaneous
  Country: US (occurrence: US)
  Receive Date: 20190423
  Receipt Date: 20211228
  Transmission Date: 20220303
  Serious: No
  Sender: FDA-Public Use
  Company Number: US-PURDUE-USA-2019-0146587

PATIENT
  Age: 58 Year
  Sex: Female

DRUGS (1)
  1. OXYCONTIN [Suspect]
     Active Substance: OXYCODONE HYDROCHLORIDE
     Indication: Product used for unknown indication
     Dosage: 1 TABLET, Q12H
     Route: 048
     Dates: end: 2010

REACTIONS (3)
  - Crying [Unknown]
  - Drug ineffective [Unknown]
  - Therapeutic product effect decreased [Unknown]
